FAERS Safety Report 19856348 (Version 2)
Quarter: 2021Q4

REPORT INFORMATION
  Report Type: Spontaneous
  Country: US (occurrence: US)
  Receive Date: 20210920
  Receipt Date: 20211129
  Transmission Date: 20220303
  Serious: Yes (Other)
  Sender: FDA-Public Use
  Company Number: US-JNJFOC-20210924167

PATIENT
  Age: 4 Decade
  Sex: Female

DRUGS (9)
  1. ELMIRON [Suspect]
     Active Substance: PENTOSAN POLYSULFATE SODIUM
     Indication: Cystitis interstitial
     Route: 048
     Dates: start: 2004, end: 2011
  2. ELMIRON [Suspect]
     Active Substance: PENTOSAN POLYSULFATE SODIUM
     Route: 048
     Dates: start: 20150817, end: 20160421
  3. CYCLOBENZAPRINE [Concomitant]
     Active Substance: CYCLOBENZAPRINE
     Indication: Muscle relaxant therapy
     Dates: start: 20170127
  4. DICYCLOMINE [Concomitant]
     Active Substance: DICYCLOMINE HYDROCHLORIDE
     Indication: Cystitis interstitial
     Dates: start: 20140807, end: 20210115
  5. GABAPENTIN [Concomitant]
     Active Substance: GABAPENTIN
     Indication: Pain
     Dates: start: 20150713, end: 20170517
  6. GABAPENTIN [Concomitant]
     Active Substance: GABAPENTIN
     Dates: start: 20170601
  7. LOSARTAN POTASSIUM [Concomitant]
     Active Substance: LOSARTAN POTASSIUM
     Indication: Hypertension
     Dates: start: 20210219
  8. OXYCODONE [Concomitant]
     Active Substance: OXYCODONE
     Indication: Pain
     Dates: start: 20140707
  9. NEXIUM I.V. [Concomitant]
     Active Substance: ESOMEPRAZOLE SODIUM
     Indication: Gastrooesophageal reflux disease
     Dates: start: 2012

REACTIONS (3)
  - Retinal pigmentation [Unknown]
  - Off label use [Unknown]
  - Inappropriate schedule of product administration [Unknown]

NARRATIVE: CASE EVENT DATE: 20040101
